FAERS Safety Report 10749875 (Version 1)
Quarter: 2015Q1

REPORT INFORMATION
  Report Type: Spontaneous
  Country: US (occurrence: US)
  Receive Date: 20150129
  Receipt Date: 20150129
  Transmission Date: 20150721
  Serious: No
  Sender: FDA-Public Use
  Company Number: US-GLAXOSMITHKLINE-US2014026053

PATIENT
  Sex: Female

DRUGS (1)
  1. ADVAIR HFA [Suspect]
     Active Substance: FLUTICASONE PROPIONATE\SALMETEROL XINAFOATE
     Indication: PRODUCT USED FOR UNKNOWN INDICATION
     Dosage: 3 PUFF(S), UNK
     Route: 055

REACTIONS (6)
  - Overdose [Unknown]
  - Unwanted awareness during anaesthesia [Unknown]
  - Paranoia [Unknown]
  - Surgery [Recovered/Resolved]
  - Drug interaction [Unknown]
  - Wheezing [Unknown]

NARRATIVE: CASE EVENT DATE: 201411
